FAERS Safety Report 5781953-6 (Version None)
Quarter: 2008Q2

REPORT INFORMATION
  Report Type: 
  Country: None (occurrence: None)
  Receive Date: 20080623
  Receipt Date: 20080620
  Transmission Date: 20081010
  Serious: Yes (Death, Hospitalization)
  Sender: FDA-Public Use
  Company Number: B0525940A

PATIENT
  Age: 62 Year
  Sex: Male

DRUGS (1)
  1. ESKAZOLE [Suspect]
     Indication: HEPATIC ECHINOCOCCIASIS
     Dosage: 200MG THREE TIMES PER DAY
     Route: 048

REACTIONS (3)
  - NEUTROPHIL COUNT DECREASED [None]
  - PNEUMONIA [None]
  - SEPSIS [None]
